FAERS Safety Report 7139351-9 (Version None)
Quarter: 2010Q4

REPORT INFORMATION
  Report Type: 
  Country: None (occurrence: None)
  Receive Date: 20101206
  Receipt Date: 20101123
  Transmission Date: 20110411
  Serious: Yes (Hospitalization)
  Sender: FDA-Public Use
  Company Number: GB-MYLANLABS-2010S1021631

PATIENT
  Age: 75 Year
  Sex: Male

DRUGS (6)
  1. AMLODIPINE [Suspect]
     Indication: HYPERTENSION
     Route: 048
     Dates: start: 20021015
  2. ISOSORBIDE DINITRATE [Suspect]
     Indication: ANGINA PECTORIS
     Dates: start: 20050211
  3. LOSARTAN POTASSIUM AND HYDROCHLOROTHIAZIDE [Suspect]
     Indication: HYPERTENSION
     Dates: start: 20020301
  4. NEBIVOLOL HCL [Suspect]
     Indication: HYPERTENSION
     Dates: start: 20040413
  5. PIOGLITAZONE [Suspect]
     Indication: TYPE 2 DIABETES MELLITUS
     Dates: start: 20081104
  6. ATORVASTATIN CALCIUM [Concomitant]
     Indication: PRODUCT USED FOR UNKNOWN INDICATION
     Dates: start: 20010727

REACTIONS (1)
  - LOSS OF CONSCIOUSNESS [None]
